FAERS Safety Report 15353058 (Version 4)
Quarter: 2018Q4

REPORT INFORMATION
  Report Type: Spontaneous
  Country: SK (occurrence: SK)
  Receive Date: 20180905
  Receipt Date: 20181217
  Transmission Date: 20190204
  Serious: Yes (Hospitalization, Other)
  Sender: FDA-Public Use
  Company Number: SK-BAUSCH-BL-2018-024311

PATIENT
  Age: 48 Year
  Sex: Male

DRUGS (5)
  1. METRONIDAZOLE. [Suspect]
     Active Substance: METRONIDAZOLE
     Indication: ANTIBIOTIC THERAPY
     Dosage: AFTER CIPRINOL AND AUGMENTIN
     Route: 065
  2. CLINDAMYCIN. [Suspect]
     Active Substance: CLINDAMYCIN
     Indication: ANTIBIOTIC THERAPY
     Dosage: AFTER CIPRINOL AND AUGMENTIN
     Route: 065
  3. GENTAMICIN SULFATE. [Suspect]
     Active Substance: GENTAMICIN SULFATE
     Indication: ANTIBIOTIC THERAPY
     Dosage: AFTER CIPRINOL AND AUGMENTIN
     Route: 065
  4. CIPRINOL [Suspect]
     Active Substance: CIPROFLOXACIN
     Indication: PRODUCT USED FOR UNKNOWN INDICATION
     Route: 048
  5. AUGMENTIN [Suspect]
     Active Substance: AMOXICILLIN\CLAVULANATE POTASSIUM
     Indication: PRODUCT USED FOR UNKNOWN INDICATION
     Route: 048

REACTIONS (10)
  - Hepatic function abnormal [Recovered/Resolved]
  - Renal impairment [Recovered/Resolved]
  - Still^s disease [Recovered/Resolved]
  - Aspartate aminotransferase increased [Recovered/Resolved]
  - Sepsis [Unknown]
  - Blood bilirubin abnormal [Recovered/Resolved]
  - Hepatitis [Recovered/Resolved]
  - Drug-induced liver injury [Unknown]
  - Alanine aminotransferase increased [Recovered/Resolved]
  - Serum ferritin increased [Recovered/Resolved]
